FAERS Safety Report 8055151-X (Version None)
Quarter: 2012Q1

REPORT INFORMATION
  Report Type: 
  Country: None (occurrence: None)
  Receive Date: 20120119
  Receipt Date: 20120110
  Transmission Date: 20120608
  Serious: Yes (Hospitalization)
  Sender: FDA-Public Use
  Company Number: JP-PFIZER INC-2012002579

PATIENT
  Age: 69 Year
  Sex: Female
  Weight: 46 kg

DRUGS (13)
  1. OXINORM [Suspect]
     Indication: CANCER PAIN
     Dosage: 5 MG, AS NEEDED
     Route: 048
     Dates: start: 20110929
  2. LASIX [Concomitant]
     Indication: OEDEMA
     Dosage: UNK
     Route: 048
     Dates: start: 20110430
  3. ECOLICIN ^SANTEN^ [Concomitant]
     Indication: CONJUNCTIVITIS
     Dosage: UNK
     Route: 047
     Dates: start: 20111007
  4. FENTANYL CITRATE [Suspect]
     Indication: CANCER PAIN
     Dosage: 4 CM/DAY
     Route: 062
     Dates: start: 20111026
  5. MOBIC [Concomitant]
     Indication: CANCER PAIN
     Dosage: 15 MG, DAILY
     Route: 048
     Dates: start: 20110602
  6. MAGMITT [Concomitant]
     Indication: CONSTIPATION
     Dosage: 660 MG, 3X/DAY
     Route: 048
     Dates: start: 20110502
  7. MEDROXYPROGESTERONE ACETATE [Suspect]
     Indication: DECREASED APPETITE
     Dosage: 400 MG, 1X/DAY
     Route: 048
     Dates: start: 20111207, end: 20111220
  8. SEROQUEL [Concomitant]
     Indication: ANXIETY
     Dosage: 25 MG, AS NEEDED
     Dates: start: 20110506
  9. ACETAMINOPHEN [Concomitant]
     Indication: CANCER PAIN
     Dosage: 600 MG, 4X/DAY
     Route: 048
     Dates: start: 20110929
  10. LAFUTIDINE [Concomitant]
     Indication: BREAST CANCER
     Dosage: 10 MG, 2X/DAY
     Route: 048
     Dates: start: 20091016
  11. AROMASIN [Concomitant]
     Indication: BREAST CANCER
     Dosage: 1 DF, 1X/DAY
     Route: 048
     Dates: start: 20091016
  12. FENTANYL CITRATE [Suspect]
     Indication: BREAST CANCER
     Dosage: UNK
     Route: 048
     Dates: start: 20111115
  13. ASPIRIN [Suspect]
     Indication: THROMBOSIS PROPHYLAXIS
     Dosage: 100 MG, 1X/DAY
     Dates: start: 20111207, end: 20111220

REACTIONS (1)
  - URINARY RETENTION [None]
